FAERS Safety Report 9846061 (Version 1)
Quarter: 2014Q1

REPORT INFORMATION
  Report Type: Spontaneous
  Country: US (occurrence: US)
  Receive Date: 20140127
  Receipt Date: 20140127
  Transmission Date: 20141002
  Serious: Yes (Other)
  Sender: FDA-Public Use
  Company Number: PHHY2014US007055

PATIENT
  Sex: Female

DRUGS (3)
  1. NEORAL [Suspect]
     Indication: PANCREAS TRANSPLANT
  2. NEORAL [Suspect]
     Indication: RENAL TRANSPLANT
  3. PREDNISONE [Suspect]

REACTIONS (5)
  - Pre-eclampsia [Unknown]
  - Hypertension [Unknown]
  - Blood creatinine increased [Unknown]
  - Premature delivery [Unknown]
  - Maternal exposure during pregnancy [Unknown]
